FAERS Safety Report 25965071 (Version 1)
Quarter: 2025Q4

REPORT INFORMATION
  Report Type: Report from Study
  Country: US (occurrence: US)
  Receive Date: 20251027
  Receipt Date: 20251027
  Transmission Date: 20260117
  Serious: Yes (Other)
  Sender: BIOGEN
  Company Number: US-BIOGEN-2087602

PATIENT
  Age: 65 Year
  Sex: Female

DRUGS (1)
  1. VUMERITY [Suspect]
     Active Substance: DIROXIMEL FUMARATE
     Indication: Multiple sclerosis
     Dates: start: 20210826, end: 20250110

REACTIONS (1)
  - Hormone receptor positive breast cancer [Not Recovered/Not Resolved]

NARRATIVE: CASE EVENT DATE: 20250101
